FAERS Safety Report 6974007-4 (Version None)
Quarter: 2010Q3

REPORT INFORMATION
  Report Type: 
  Country: None (occurrence: None)
  Receive Date: 20100907
  Receipt Date: 20100827
  Transmission Date: 20110219
  Serious: Yes (Hospitalization)
  Sender: FDA-Public Use
  Company Number: 013848

PATIENT
  Sex: Female

DRUGS (4)
  1. VIMPAT [Suspect]
     Indication: PARTIAL SEIZURES
     Dosage: (100 MG BID ORAL)
     Route: 048
     Dates: start: 20100201, end: 20100325
  2. TRILEPTAL [Suspect]
     Indication: EPILEPSY
     Dosage: (600 MG BID ORAL)
     Route: 048
     Dates: start: 20000101
  3. KEPPRA [Concomitant]
  4. ATARAX [Concomitant]

REACTIONS (10)
  - ABDOMINAL PAIN [None]
  - CONDITION AGGRAVATED [None]
  - DIPLOPIA [None]
  - DRUG INTERACTION [None]
  - DRUG LEVEL INCREASED [None]
  - EPILEPSY [None]
  - HEADACHE [None]
  - HYPONATRAEMIA [None]
  - OVERDOSE [None]
  - VERTIGO [None]
